FAERS Safety Report 15115305 (Version 1)
Quarter: 2018Q3

REPORT INFORMATION
  Report Type: Spontaneous
  Country: US (occurrence: US)
  Receive Date: 20180612
  Receipt Date: 20180612
  Transmission Date: 20181010
  Serious: Yes (Other)
  Sender: FDA-Public Use
  Company Number: None

PATIENT
  Age: 44 Week
  Sex: Female
  Weight: 90.72 kg

DRUGS (7)
  1. KENALOG [Suspect]
     Active Substance: TRIAMCINOLONE ACETONIDE
     Indication: PSORIASIS
     Dosage: ?          QUANTITY:10 MG MILLIGRAM(S);?
     Dates: start: 20160203, end: 20170501
  2. HUMIRA [Concomitant]
     Active Substance: ADALIMUMAB
  3. IBUPROFEN. [Concomitant]
     Active Substance: IBUPROFEN
  4. METHOCARBAMOL (ROBAXIN) [Concomitant]
  5. TYLENOL EXTRA STRENGTH [Concomitant]
     Active Substance: ACETAMINOPHEN
  6. GABAPENTIN. [Concomitant]
     Active Substance: GABAPENTIN
  7. NAPROXEN. [Concomitant]
     Active Substance: NAPROXEN

REACTIONS (1)
  - Osteonecrosis [None]
